FAERS Safety Report 5030703-X (Version None)
Quarter: 2006Q2

REPORT INFORMATION
  Report Type: 
  Country: None (occurrence: None)
  Receive Date: 20060615
  Receipt Date: 20060607
  Transmission Date: 20061013
  Serious: Yes (Hospitalization)
  Sender: FDA-Public Use
  Company Number: 2006072682

PATIENT
  Age: 75 Year
  Sex: Female

DRUGS (6)
  1. AMLODIPINE [Suspect]
     Indication: ILL-DEFINED DISORDER
     Dosage: 5 MG (5 MG, DAILY), ORAL
     Route: 048
     Dates: start: 20030615
  2. ZOLPIDEM (ZOLPIDEM) [Suspect]
     Indication: ILL-DEFINED DISORDER
     Dosage: 10 MG (10 MG, DAILY), ORAL
     Route: 048
     Dates: end: 20060419
  3. CLOPIDOGREL [Suspect]
     Indication: ILL-DEFINED DISORDER
     Dosage: 1 DF  DAILY, ORAL
     Route: 048
     Dates: start: 20030615
  4. HYDROXYCARBAMIDE (HYDROXYCARBAMIDE) [Suspect]
     Indication: ILL-DEFINED DISORDER
     Dosage: 500 MG (500 MG, DAILY) ORAL
     Route: 048
     Dates: start: 20060301, end: 20060415
  5. INDAPAMIDE [Suspect]
     Indication: ILL-DEFINED DISORDER
     Dosage: 1.5 MG (1.5 MG, DAILY),ORAL
     Route: 048
     Dates: start: 20030615
  6. CLOXALIN (CLOXACILLIN) [Concomitant]

REACTIONS (9)
  - CHEILITIS [None]
  - CONJUNCTIVITIS [None]
  - EOSINOPHILIA [None]
  - HUMAN HERPES VIRUS 6 SEROLOGY POSITIVE [None]
  - LIP ULCERATION [None]
  - PRURITUS [None]
  - PURPURA [None]
  - TOXIC SKIN ERUPTION [None]
  - VASCULITIS [None]
